FAERS Safety Report 4746606-1 (Version None)
Quarter: 2005Q3

REPORT INFORMATION
  Report Type: 
  Country: None (occurrence: None)
  Receive Date: 20050815
  Receipt Date: 20050802
  Transmission Date: 20060218
  Serious: Yes (Other)
  Sender: FDA-Public Use
  Company Number: 2005110253

PATIENT
  Sex: Male

DRUGS (4)
  1. LIPITOR [Suspect]
     Indication: HYPERCHOLESTEROLAEMIA
     Dates: start: 20050701, end: 20050802
  2. ASPIRIN [Suspect]
     Indication: ILL-DEFINED DISORDER
     Dates: start: 20050701, end: 20050802
  3. ACE INHIBITOR NOS (ACE INHIBITOR NOS) [Suspect]
     Indication: ILL-DEFINED DISORDER
     Dates: start: 20050701, end: 20050802
  4. BETA BLOCKING AGENTS (BETA BLOCKING AGENTS) [Suspect]
     Indication: ILL-DEFINED DISORDER
     Dates: start: 20050701, end: 20050802

REACTIONS (1)
  - VISION BLURRED [None]
